FAERS Safety Report 7978760-2 (Version None)
Quarter: 2011Q4

REPORT INFORMATION
  Report Type: 
  Country: None (occurrence: None)
  Receive Date: 20111129
  Receipt Date: 20110630
  Transmission Date: 20120403
  Serious: Yes (Other)
  Sender: FDA-Public Use
  Company Number: PHHY2011US33986

PATIENT
  Age: 14 Year
  Sex: Male

DRUGS (9)
  1. KEPPRA [Concomitant]
  2. CALCIUM CARBONATE [Concomitant]
  3. MULTIPLE VITAMINS (ASCORBIC ACID, ERGOCALCIFEROL, FOLIC ACID, RETINOL, [Concomitant]
  4. BACTRIM [Concomitant]
  5. AFINITOR [Suspect]
     Indication: TUBEROUS SCLEROSIS
     Dosage: 2.5 MG, DAILY, ORAL; 5 MG DAILY, ORAL; 2.5 MG, DAILY, ORAL
     Route: 048
     Dates: start: 20110625
  6. AFINITOR [Suspect]
     Indication: TUBEROUS SCLEROSIS
     Dosage: 2.5 MG, DAILY, ORAL; 5 MG DAILY, ORAL; 2.5 MG, DAILY, ORAL
     Route: 048
     Dates: start: 20110416
  7. TRILEPTAL [Concomitant]
  8. ZANTAC [Concomitant]
  9. DIASTAT [Concomitant]

REACTIONS (3)
  - VOMITING [None]
  - WHITE BLOOD CELL COUNT DECREASED [None]
  - BLOOD SODIUM DECREASED [None]
